FAERS Safety Report 12973903 (Version 1)
Quarter: 2016Q4

REPORT INFORMATION
  Report Type: Spontaneous
  Country: CN (occurrence: CN)
  Receive Date: 20161124
  Receipt Date: 20161124
  Transmission Date: 20170207
  Serious: Yes (Hospitalization)
  Sender: FDA-Public Use
  Company Number: CN-ASTRAZENECA-2016SF12723

PATIENT
  Age: 58 Year
  Sex: Male

DRUGS (1)
  1. IRESSA [Suspect]
     Active Substance: GEFITINIB
     Indication: LUNG ADENOCARCINOMA
     Route: 048
     Dates: start: 2015, end: 201610

REACTIONS (12)
  - Lacunar infarction [Recovering/Resolving]
  - Metastases to pleura [Unknown]
  - Malignant neoplasm progression [Unknown]
  - Pneumonia [Recovering/Resolving]
  - Lymphangiosis carcinomatosa [Unknown]
  - Embolism [Recovering/Resolving]
  - Hyperpyrexia [Unknown]
  - Interstitial lung disease [Recovering/Resolving]
  - Pleural effusion [Recovering/Resolving]
  - Metastases to bone [Unknown]
  - Respiratory failure [Recovering/Resolving]
  - Haemoptysis [Unknown]
